FAERS Safety Report 21956176 (Version 1)
Quarter: 2023Q1

REPORT INFORMATION
  Report Type: Spontaneous
  Country: IT (occurrence: None)
  Receive Date: 20230206
  Receipt Date: 20230206
  Transmission Date: 20230417
  Serious: Yes (Death)
  Sender: FDA-Public Use
  Company Number: IT-ROCHE-3278927

PATIENT
  Age: 53 Year
  Sex: Male
  Weight: 62 kg

DRUGS (9)
  1. VALGANCICLOVIR [Suspect]
     Active Substance: VALGANCICLOVIR
     Indication: Chronic hepatitis C
     Dosage: 450 MILLIGRAM IN 12 HOUR
     Route: 048
     Dates: start: 20221010, end: 20221230
  2. CELLCEPT [Suspect]
     Active Substance: MYCOPHENOLATE MOFETIL
     Indication: Liver transplant
     Dosage: 1000 MILLIGRAM IN 12 HOUR
     Route: 048
     Dates: start: 2021, end: 2022
  3. METHYLPREDNISOLONE SODIUM SUCCINATE [Suspect]
     Active Substance: METHYLPREDNISOLONE SODIUM SUCCINATE
     Indication: Liver transplant
     Dosage: 6 MILLIGRAM IN 24 HOUR
     Route: 048
     Dates: start: 2021, end: 2022
  4. TACROLIMUS [Suspect]
     Active Substance: TACROLIMUS
     Indication: Liver transplant
     Dosage: 400 MILLIGRAM IN 24 HOUR
     Route: 048
     Dates: start: 2021, end: 2022
  5. HUMALOG [Suspect]
     Active Substance: INSULIN LISPRO
     Indication: Insulin-requiring type 2 diabetes mellitus
     Dosage: 3 IU AT BREAKFAST, 5 IU AT LUNCH,5 IU AT DINNER
     Route: 058
  6. EPCLUSA [Suspect]
     Active Substance: SOFOSBUVIR\VELPATASVIR
     Indication: Hepatitis C virus test positive
     Dosage: 1 DOSAGE FORM IN 24 HRS
     Route: 048
     Dates: start: 20221121, end: 20221230
  7. DEURSIL [Concomitant]
     Active Substance: URSODIOL
     Dosage: 300MG IN 12 HRS
     Route: 048
  8. NEXIUM [Concomitant]
     Active Substance: ESOMEPRAZOLE MAGNESIUM
     Dosage: 40 MILLIGRAM IN 24 HOUR
     Route: 048
  9. THIAMINE HYDROCHLORIDE [Concomitant]
     Active Substance: THIAMINE HYDROCHLORIDE
     Dosage: 300 MILLIGRAM IN 12 HOUR //
     Route: 048

REACTIONS (2)
  - Death [Fatal]
  - Off label use [Unknown]

NARRATIVE: CASE EVENT DATE: 20221230
